FAERS Safety Report 20872801 (Version 4)
Quarter: 2022Q2

REPORT INFORMATION
  Report Type: Spontaneous
  Country: US (occurrence: US)
  Receive Date: 20220525
  Receipt Date: 20220623
  Transmission Date: 20220720
  Serious: No
  Sender: FDA-Public Use
  Company Number: US-PFIZER INC-202200739279

PATIENT
  Age: 69 Year
  Sex: Female

DRUGS (1)
  1. IBRANCE [Suspect]
     Active Substance: PALBOCICLIB
     Dosage: 125 MG
     Dates: start: 20220419

REACTIONS (9)
  - White blood cell count decreased [Unknown]
  - Gingival pain [Unknown]
  - Diarrhoea [Unknown]
  - Skin lesion [Recovering/Resolving]
  - Rash pruritic [Recovering/Resolving]
  - Rash papular [Recovering/Resolving]
  - Muscle spasms [Unknown]
  - Nerve injury [Unknown]
  - Headache [Unknown]

NARRATIVE: CASE EVENT DATE: 20220101
